FAERS Safety Report 6982946-3 (Version None)
Quarter: 2010Q3

REPORT INFORMATION
  Report Type: 
  Country: None (occurrence: None)
  Receive Date: 20100914
  Receipt Date: 20100614
  Transmission Date: 20110219
  Serious: Yes (Other)
  Sender: FDA-Public Use
  Company Number: US-PFIZER INC-2010049211

PATIENT
  Sex: Female
  Weight: 86.168 kg

DRUGS (3)
  1. LYRICA [Suspect]
     Indication: NEUROPATHY PERIPHERAL
     Dosage: 250 MG, 2X/DAY
     Route: 048
     Dates: start: 20090701
  2. NAPROXEN [Concomitant]
     Dosage: UNK
  3. PAXIL [Concomitant]
     Dosage: UNK

REACTIONS (1)
  - WEIGHT INCREASED [None]
